FAERS Safety Report 7012003-1 (Version None)
Quarter: 2010Q3

REPORT INFORMATION
  Report Type: 
  Country: None (occurrence: None)
  Receive Date: 20100924
  Receipt Date: 20100916
  Transmission Date: 20110219
  Serious: Yes (Disabling)
  Sender: FDA-Public Use
  Company Number: US-US-EMD SERONO, INC.-236514K09USA

PATIENT
  Sex: Male

DRUGS (1)
  1. REBIF [Suspect]
     Indication: MULTIPLE SCLEROSIS
     Route: 058
     Dates: start: 20090422, end: 20090605

REACTIONS (9)
  - DEAFNESS [None]
  - DEPRESSION [None]
  - FATIGUE [None]
  - HYPERHIDROSIS [None]
  - INJECTION SITE REACTION [None]
  - NAUSEA [None]
  - PAIN [None]
  - PARAESTHESIA [None]
  - STRESS [None]
